FAERS Safety Report 5534690-7 (Version None)
Quarter: 2007Q4

REPORT INFORMATION
  Report Type: 
  Country: None (occurrence: None)
  Receive Date: 20071130
  Receipt Date: 20071126
  Transmission Date: 20080405
  Serious: Yes (Death)
  Sender: FDA-Public Use
  Company Number: 163-21880-07111397

PATIENT
  Age: 65 Year
  Sex: Male
  Weight: 94.4389 kg

DRUGS (19)
  1. REVLIMID [Suspect]
     Indication: MULTIPLE MYELOMA
     Dosage: 15 MG, DAYS 1-14, ORAL
     Route: 048
     Dates: start: 20070919, end: 20071110
  2. BORTEZOMIB (BORTEZOMIB) [Suspect]
     Indication: MULTIPLE MYELOMA
     Dosage: 2.3 MG, DAYS 1, 4, 8, 11, ORAL
     Route: 048
     Dates: start: 20070919, end: 20071109
  3. LOPRESSOR [Concomitant]
  4. MEPRON [Concomitant]
  5. NORVASC [Concomitant]
  6. OMEPRAZOLE [Concomitant]
  7. OXYCODONE HCL [Concomitant]
  8. THYROID TAB [Concomitant]
  9. RITALIN [Concomitant]
  10. LOMOTIL [Concomitant]
  11. LASIX [Concomitant]
  12. HYDROCHLOROTHIAZIDE [Concomitant]
  13. FOLIC ACID [Concomitant]
  14. FLUCONAZOLE [Concomitant]
  15. FAMVIR [Concomitant]
  16. CELEXA [Concomitant]
  17. AREDIA [Concomitant]
  18. ALLOPURINOL [Concomitant]
  19. ACTIGALL (UROSODEOXYCHOLIC ACID) [Concomitant]

REACTIONS (1)
  - INFECTION [None]
